FAERS Safety Report 8258017-5 (Version None)
Quarter: 2012Q2

REPORT INFORMATION
  Report Type: 
  Country: None (occurrence: None)
  Receive Date: 20120404
  Receipt Date: 20120330
  Transmission Date: 20120825
  Serious: Yes (Other)
  Sender: FDA-Public Use
  Company Number: GB-AMGEN-GBRSP2012020689

PATIENT
  Sex: Male

DRUGS (4)
  1. BLEOMYCIN SULFATE [Concomitant]
     Indication: TESTIS CANCER
  2. ETOPOSIDE [Concomitant]
     Indication: TESTIS CANCER
     Dosage: UNK
  3. PLATINUM [Concomitant]
     Indication: TESTIS CANCER
  4. NEUPOGEN [Suspect]
     Indication: CHEMOTHERAPY

REACTIONS (1)
  - ANGIOEDEMA [None]
